FAERS Safety Report 9022330 (Version 1)
Quarter: 2013Q1

REPORT INFORMATION
  Report Type: Report from Study
  Country: GB (occurrence: GB)
  Receive Date: 20130118
  Receipt Date: 20130118
  Transmission Date: 20140127
  Serious: Yes (Hospitalization)
  Sender: FDA-Public Use
  Company Number: PHHO2013GB000783

PATIENT
  Age: 62 Year
  Sex: Male
  Weight: 84 kg

DRUGS (9)
  1. EVEROLIMUS [Suspect]
     Indication: RENAL CELL CARCINOMA
     Dosage: 5 MG, QD
     Route: 048
     Dates: start: 20121008
  2. LANSOPRAZOLE [Concomitant]
     Dosage: 30 MG, QD
     Route: 048
  3. GABAPENTIN [Concomitant]
     Dosage: 300 MG, TID
     Route: 048
  4. PARACETAMOL [Concomitant]
     Dosage: 1 G, QID
     Route: 048
  5. FENTANYL [Concomitant]
     Dosage: 100 UG, UNK
     Route: 062
  6. AMITRIPTYLIN [Concomitant]
     Dosage: 10 MG, AT NIGHT
     Route: 048
  7. RAMIPRIL [Concomitant]
     Dosage: 2.5 MG, QD
     Route: 048
  8. METFORMIN [Concomitant]
     Dosage: 500 MG, QD
     Route: 048
  9. HOPE [Concomitant]
     Indication: RENAL CELL CARCINOMA
     Dosage: 18 MG, QD
     Route: 048
     Dates: start: 20121008

REACTIONS (3)
  - Convulsion [Unknown]
  - Confusional state [Unknown]
  - Headache [Unknown]
